FAERS Safety Report 8833256 (Version 2)
Quarter: 2013Q1

REPORT INFORMATION
  Report Type: Spontaneous
  Country: US (occurrence: US)
  Receive Date: 20121010
  Receipt Date: 20130308
  Transmission Date: 20140127
  Serious: Yes (Hospitalization)
  Sender: FDA-Public Use
  Company Number: PHEH2012US019309

PATIENT
  Age: 68 Year
  Sex: Male
  Weight: 74.83 kg

DRUGS (10)
  1. GLEEVEC [Suspect]
     Indication: CHRONIC MYELOID LEUKAEMIA
     Dosage: 4 DF, QD
     Route: 048
     Dates: start: 201206
  2. LASIX [Concomitant]
     Dosage: 20 MG, UNK
     Route: 048
  3. LANTUS [Concomitant]
     Dosage: 100 /ML, UNK
     Route: 058
  4. METOPROLOL TARTRATE [Concomitant]
     Dosage: 100 MG, UNK
     Route: 048
  5. SIMVASTATIN [Concomitant]
     Dosage: 10 MG, UNK
     Route: 048
  6. GLIPIZIDE [Concomitant]
     Dosage: 10 MG, UNK
     Route: 048
  7. WARFARIN [Concomitant]
     Dosage: 10 MG, UNK
     Route: 048
  8. MAGNESIUM [Concomitant]
     Dosage: 300 MG, UNK
     Route: 048
  9. RENAL [Concomitant]
     Route: 048
  10. PLAVIX [Concomitant]
     Dosage: 300 MG, UNK
     Route: 048

REACTIONS (8)
  - Ketoacidosis [Unknown]
  - Lung disorder [Unknown]
  - Urinary tract infection [Unknown]
  - Renal failure [Unknown]
  - Blood glucose increased [Unknown]
  - Local swelling [Unknown]
  - Vomiting [Unknown]
  - Diarrhoea [Unknown]
